FAERS Safety Report 8988033 (Version 2)
Quarter: 2013Q1

REPORT INFORMATION
  Report Type: Report from Study
  Country: US (occurrence: US)
  Receive Date: 20121227
  Receipt Date: 20130104
  Transmission Date: 20140127
  Serious: Yes (Death)
  Sender: FDA-Public Use
  Company Number: US-ACTELION-A-NJ2012-76745

PATIENT
  Age: 66 Year
  Sex: Male

DRUGS (4)
  1. TRACLEER [Suspect]
     Indication: PULMONARY ARTERIAL HYPERTENSION
     Dosage: UNK
     Route: 048
     Dates: end: 20121205
  2. PREDNISONE [Concomitant]
     Dosage: 20 MG, UNK
  3. LASIX [Concomitant]
     Dosage: 40 MG, UNK
  4. K [Concomitant]

REACTIONS (2)
  - Sepsis [Fatal]
  - Pneumonia pneumococcal [Fatal]
